FAERS Safety Report 13303962 (Version 1)
Quarter: 2017Q1

REPORT INFORMATION
  Report Type: Not Available
  Country: US (occurrence: US)
  Receive Date: 20170307
  Receipt Date: 20170307
  Transmission Date: 20170428
  Serious: Yes (Other)
  Sender: FDA-Public Use
  Company Number: US--2017-US-000030

PATIENT
  Age: 16 Year
  Sex: Female

DRUGS (1)
  1. AMLODIPINE BESYLATE BRAND UNSPECIFIED (VIVIMED) [Suspect]
     Active Substance: AMLODIPINE BESYLATE
     Indication: PRODUCT USED FOR UNKNOWN INDICATION
     Dosage: MOST LIKELY HAD INGESTED 400 MG

REACTIONS (6)
  - Acute kidney injury [None]
  - Overdose [Unknown]
  - Cardiogenic shock [Recovered/Resolved]
  - Muscular weakness [None]
  - Paraesthesia [None]
  - Nerve injury [None]
